FAERS Safety Report 7688267-8 (Version None)
Quarter: 2011Q3

REPORT INFORMATION
  Report Type: 
  Country: None (occurrence: None)
  Receive Date: 20110817
  Receipt Date: 20110812
  Transmission Date: 20111222
  Serious: Yes (Other)
  Sender: FDA-Public Use
  Company Number: BR-SANOFI-AVENTIS-2011SA021067

PATIENT
  Age: 70 Year
  Sex: Female
  Weight: 50 kg

DRUGS (19)
  1. AUTOPEN 24 [Suspect]
  2. METFORMIN HCL [Concomitant]
  3. METFORMIN HCL [Concomitant]
     Route: 048
     Dates: start: 20110301
  4. CLIKSTAR [Suspect]
  5. ANGIPRESS [Concomitant]
  6. PASALIX [Concomitant]
  7. VALERIANA OFFICINALIS EXTRACT [Concomitant]
  8. LANTUS [Suspect]
     Route: 058
     Dates: start: 20110101, end: 20110101
  9. METFORMIN HCL [Concomitant]
  10. LANTUS [Suspect]
     Route: 058
     Dates: end: 20110101
  11. METFORMIN HCL [Concomitant]
     Route: 048
     Dates: start: 20110301
  12. SOMALGIN [Concomitant]
     Route: 048
     Dates: start: 20110301
  13. ALL OTHER THERAPEUTIC PRODUCTS [Concomitant]
     Route: 048
  14. LANTUS [Suspect]
     Route: 058
  15. LANTUS [Suspect]
  16. ASPIRIN [Concomitant]
  17. PASALIX [Concomitant]
  18. AMLODIPINE/VALSARTAN [Concomitant]
  19. VALSARTAN [Concomitant]
     Route: 048

REACTIONS (22)
  - INJECTION SITE DISCOMFORT [None]
  - HYPOGLYCAEMIA [None]
  - INJECTION SITE INDURATION [None]
  - EYE DISORDER [None]
  - CONDITION AGGRAVATED [None]
  - HYPERTENSION [None]
  - UNEVALUABLE EVENT [None]
  - INJECTION SITE PAIN [None]
  - HYPERGLYCAEMIA [None]
  - STRESS [None]
  - ASTHENIA [None]
  - FEELING ABNORMAL [None]
  - VISUAL IMPAIRMENT [None]
  - EYE HAEMORRHAGE [None]
  - PAIN IN EXTREMITY [None]
  - VISION BLURRED [None]
  - CARPAL TUNNEL SYNDROME [None]
  - HYPOAESTHESIA [None]
  - PERIPHERAL COLDNESS [None]
  - CEREBROVASCULAR ACCIDENT [None]
  - HEART RATE INCREASED [None]
  - NERVOUSNESS [None]
